FAERS Safety Report 17161900 (Version 1)
Quarter: 2019Q4

REPORT INFORMATION
  Report Type: Spontaneous
  Country: JP (occurrence: JP)
  Receive Date: 20191217
  Receipt Date: 20191217
  Transmission Date: 20200122
  Serious: Yes (Other)
  Sender: FDA-Public Use
  Company Number: JP-TEVA-2019-JP-1085058

PATIENT
  Age: 82 Year
  Sex: Male

DRUGS (9)
  1. RASAGILINE [RASAGILINE MESYLATE] [Suspect]
     Active Substance: RASAGILINE MESYLATE
     Indication: PARKINSON^S DISEASE
     Route: 048
     Dates: start: 20190611, end: 20190621
  2. EXCEGRAN [Concomitant]
     Active Substance: ZONISAMIDE
     Route: 065
  3. BELSOMRA [Concomitant]
     Active Substance: SUVOREXANT
     Route: 065
  4. AMANTADINE HYDROCHLORIDE. [Concomitant]
     Active Substance: AMANTADINE HYDROCHLORIDE
     Route: 065
  5. QUETIAPINE 01270902 [Concomitant]
     Route: 065
  6. VALSARTAN. [Concomitant]
     Active Substance: VALSARTAN
     Route: 065
  7. NEUPRO [Concomitant]
     Active Substance: ROTIGOTINE
     Route: 065
  8. NOURIAST [Concomitant]
     Active Substance: ISTRADEFYLLINE
     Route: 065
  9. MAGNESIUM OXIDE. [Concomitant]
     Active Substance: MAGNESIUM OXIDE
     Route: 065

REACTIONS (4)
  - Somnolence [Recovered/Resolved]
  - Hallucination, visual [Unknown]
  - Hallucination [Recovering/Resolving]
  - Psychiatric symptom [Unknown]

NARRATIVE: CASE EVENT DATE: 2019
